FAERS Safety Report 6452596-6 (Version None)
Quarter: 2009Q4

REPORT INFORMATION
  Report Type: 
  Country: None (occurrence: None)
  Receive Date: 20091124
  Receipt Date: 20091116
  Transmission Date: 20100525
  Serious: Yes (Other)
  Sender: FDA-Public Use
  Company Number: US-ASTRAZENECA-2007UW12246

PATIENT
  Age: 10413 Day
  Sex: Female
  Weight: 95.3 kg

DRUGS (16)
  1. SEROQUEL [Suspect]
     Indication: BIPOLAR DISORDER
     Dosage: 25 MG TO 100 MG
     Route: 048
     Dates: start: 20010903, end: 20060426
  2. SEROQUEL [Suspect]
     Dosage: 25 - 75 MG
     Route: 048
     Dates: start: 20040212
  3. ABILIFY [Concomitant]
     Dates: start: 20040101, end: 20060101
  4. ABILIFY [Concomitant]
     Dates: start: 20070207
  5. AMBIEN [Concomitant]
     Dates: start: 20080101
  6. DEPAKOTE [Concomitant]
     Dates: start: 20080101
  7. LEXAPRO [Concomitant]
     Dates: start: 20020701
  8. LEXAPRO [Concomitant]
     Dates: start: 20070207
  9. ATIVAN [Concomitant]
     Route: 048
     Dates: start: 20031218, end: 20040212
  10. PROZAC [Concomitant]
     Route: 048
     Dates: start: 20031030
  11. RISPERDAL [Concomitant]
     Dosage: 1 AT NIGHT
  12. MOTRIN [Concomitant]
     Indication: PAIN
     Dates: start: 20061101
  13. METFORMIN HCL [Concomitant]
     Dates: start: 20070207
  14. LISINOPRIL [Concomitant]
     Dates: start: 20070207
  15. ANAPROX [Concomitant]
     Route: 048
     Dates: start: 20041123
  16. DESYREL [Concomitant]
     Route: 048
     Dates: start: 20021120

REACTIONS (6)
  - BLOOD TRIGLYCERIDES INCREASED [None]
  - DIABETES MELLITUS [None]
  - DIABETIC KETOACIDOSIS [None]
  - HYPERHOMOCYSTEINAEMIA [None]
  - NEUROPATHY PERIPHERAL [None]
  - TYPE 2 DIABETES MELLITUS [None]
